FAERS Safety Report 9341054 (Version 2)
Quarter: 2013Q2

REPORT INFORMATION
  Report Type: Report from Study
  Country: CA (occurrence: CA)
  Receive Date: 20130610
  Receipt Date: 20130614
  Transmission Date: 20140414
  Serious: Yes (Death, Other)
  Sender: FDA-Public Use
  Company Number: CA-ASTRAZENECA-2013SE11367

PATIENT
  Age: 88 Year
  Sex: Male

DRUGS (11)
  1. ZOLADEX LA [Suspect]
     Indication: PROSTATE CANCER
     Route: 058
     Dates: start: 2010, end: 20130213
  2. DOCUSATE [Concomitant]
  3. LASIX [Concomitant]
  4. ADALAT [Concomitant]
  5. RANITIDINE [Concomitant]
  6. SENOKOT [Concomitant]
  7. LACTULOSE [Concomitant]
  8. ARANESP [Concomitant]
  9. FENTANYL CADD PUMP [Concomitant]
  10. AZITHROMYCIN [Concomitant]
     Dosage: DAILY X 5 DAYS
  11. OXYGEN [Concomitant]

REACTIONS (5)
  - Disease progression [Fatal]
  - Pneumonia [Unknown]
  - Metastases to bone [Unknown]
  - Hip fracture [Unknown]
  - Cystitis [Unknown]
